FAERS Safety Report 6431527-9 (Version None)
Quarter: 2009Q4

REPORT INFORMATION
  Report Type: 
  Country: None (occurrence: None)
  Receive Date: 20091103
  Receipt Date: 20091022
  Transmission Date: 20100525
  Serious: Yes (Other)
  Sender: FDA-Public Use
  Company Number: 230112M09CAN

PATIENT
  Age: 71 Year
  Sex: Male

DRUGS (7)
  1. REBIF [Suspect]
     Indication: MULTIPLE SCLEROSIS
     Dosage: 44 MCG, 3 IN 1 WEEKS, SUBCUTANEOUS
     Route: 058
     Dates: start: 20090810
  2. ADVIL [Concomitant]
  3. ASPIRIN [Concomitant]
  4. ALOPURINOL (ALLOPURINOL) [Concomitant]
  5. NORVASC [Concomitant]
  6. LISINOPRIL [Concomitant]
  7. HYDROCHLOROTHIAZIDE [Concomitant]

REACTIONS (4)
  - FATIGUE [None]
  - INJECTION SITE ERYTHEMA [None]
  - KERATOACANTHOMA [None]
  - NIGHT SWEATS [None]
